FAERS Safety Report 7394355-6 (Version None)
Quarter: 2011Q2

REPORT INFORMATION
  Report Type: 
  Country: None (occurrence: None)
  Receive Date: 20110405
  Receipt Date: 20110331
  Transmission Date: 20111010
  Serious: Yes (Other)
  Sender: FDA-Public Use
  Company Number: US-ROXANE LABORATORIES, INC.-2011-RO-00443RO

PATIENT
  Age: 38 Year
  Sex: Female

DRUGS (4)
  1. MORPHINE [Suspect]
     Indication: GASTROINTESTINAL PAIN
     Dosage: 10.5 MG
     Route: 037
  2. BUPIVACAINE [Suspect]
     Dosage: 9 MG
     Route: 037
  3. MORPHINE [Suspect]
     Dosage: 15 MG
     Route: 037
  4. BUPIVACAINE [Suspect]
     Indication: GASTROINTESTINAL PAIN
     Dosage: 5.3 MG
     Route: 037

REACTIONS (2)
  - FOREIGN BODY REACTION [None]
  - DRUG EFFECT DECREASED [None]
